FAERS Safety Report 6278153-2 (Version None)
Quarter: 2009Q3

REPORT INFORMATION
  Report Type: 
  Country: None (occurrence: None)
  Receive Date: 20090722
  Receipt Date: 20090713
  Transmission Date: 20100115
  Serious: Yes (Hospitalization, Other)
  Sender: FDA-Public Use
  Company Number: CH-AMGEN-QUU351298

PATIENT
  Sex: Male
  Weight: 81 kg

DRUGS (9)
  1. NEULASTA [Suspect]
     Indication: CHEMOTHERAPY
     Route: 058
     Dates: start: 20090508
  2. RITUXIMAB [Suspect]
     Route: 042
     Dates: start: 20090423
  3. CYCLOPHOSPHAMIDE [Suspect]
     Route: 042
  4. DOXORUBICIN HCL [Suspect]
     Route: 042
  5. ONCOVIN [Suspect]
     Route: 042
  6. PREDNISOLONE [Suspect]
     Route: 048
  7. CYTOSAR-U [Suspect]
     Route: 042
  8. METHOTREXATE [Suspect]
     Route: 042
  9. DEXAMETHASONE [Suspect]
     Route: 042
     Dates: end: 20090507

REACTIONS (2)
  - GUILLAIN-BARRE SYNDROME [None]
  - LEUKOCYTOSIS [None]
